FAERS Safety Report 7237733-8 (Version None)
Quarter: 2011Q1

REPORT INFORMATION
  Report Type: 
  Country: None (occurrence: None)
  Receive Date: 20110121
  Receipt Date: 20110112
  Transmission Date: 20110831
  Serious: Yes (Other)
  Sender: FDA-Public Use
  Company Number: CN-JNJFOC-20110105105

PATIENT

DRUGS (1)
  1. CISAPRIDE [Suspect]
     Indication: FOOD INTOLERANCE
     Dosage: 0.2-0.3 ML (1 MG/ML)/KG.EVERY TIME), 15-30 MINS BEFORE FEEDING
     Route: 048

REACTIONS (4)
  - VOMITING [None]
  - CONTRAINDICATION TO MEDICAL TREATMENT [None]
  - GASTROINTESTINAL INJURY [None]
  - GASTROINTESTINAL HAEMORRHAGE [None]
